FAERS Safety Report 9214746 (Version 2)
Quarter: 2013Q2

REPORT INFORMATION
  Report Type: Spontaneous
  Country: IT (occurrence: IT)
  Receive Date: 20130405
  Receipt Date: 20130503
  Transmission Date: 20140414
  Serious: Yes (Hospitalization)
  Sender: FDA-Public Use
  Company Number: IT-ROCHE-1210089

PATIENT
  Age: 50 Year
  Sex: Female

DRUGS (15)
  1. VESANOID [Suspect]
     Indication: ACUTE PROMYELOCYTIC LEUKAEMIA
     Route: 048
     Dates: start: 20120714, end: 20120715
  2. VESANOID [Suspect]
     Route: 048
     Dates: start: 20120726, end: 20120726
  3. URBASON SOLUBILE [Concomitant]
     Route: 042
  4. PARIET [Concomitant]
     Route: 048
  5. TAVANIC [Concomitant]
     Route: 048
  6. ZYLORIC [Concomitant]
     Route: 048
  7. LYRICA [Concomitant]
     Route: 048
  8. LEXOTAN [Concomitant]
     Route: 048
  9. MAALOX (CALCIUM CARBONATE) [Concomitant]
     Route: 048
  10. NOXAFIL [Concomitant]
     Route: 048
  11. ZAVEDOS [Concomitant]
     Indication: ACUTE PROMYELOCYTIC LEUKAEMIA
     Route: 042
     Dates: start: 20120716, end: 20120722
  12. TAVOR (ITALY) [Concomitant]
     Route: 048
  13. LORTAAN [Concomitant]
     Route: 048
  14. SOLDESAM [Concomitant]
     Route: 042
  15. ONCO CARBIDE [Concomitant]
     Route: 048

REACTIONS (2)
  - Retinoic acid syndrome [Recovered/Resolved]
  - Gastrointestinal necrosis [Recovered/Resolved with Sequelae]
